FAERS Safety Report 7941005-3 (Version None)
Quarter: 2011Q4

REPORT INFORMATION
  Report Type: 
  Country: None (occurrence: None)
  Receive Date: 20111128
  Receipt Date: 20100614
  Transmission Date: 20120403
  Serious: No
  Sender: FDA-Public Use
  Company Number: US-BAYER-201025497NA

PATIENT
  Sex: Male

DRUGS (1)
  1. LEUKINE [Suspect]
     Indication: PRODUCT USED FOR UNKNOWN INDICATION
     Dosage: 2 WEEKS ON, 2 WEEKS OFF SCHEDULE

REACTIONS (1)
  - WHITE BLOOD CELL COUNT DECREASED [None]
